FAERS Safety Report 8165317-6 (Version None)
Quarter: 2012Q1

REPORT INFORMATION
  Report Type: 
  Country: None (occurrence: None)
  Receive Date: 20120223
  Receipt Date: 20120223
  Transmission Date: 20120608
  Serious: Yes (Disabling)
  Sender: FDA-Public Use
  Company Number: None

PATIENT
  Sex: Female
  Weight: 60 kg

DRUGS (2)
  1. FEMARA [Suspect]
     Indication: BREAST CANCER
     Dosage: 2.5MG ONCE DAILY BY MOUTH
     Route: 048
     Dates: start: 20070601, end: 20120106
  2. TAMOXIFEN CITRATE [Suspect]
     Indication: BREAST CANCER
     Dosage: 20MG ONCE DAILY BY MOUTH
     Route: 048
     Dates: start: 20020801, end: 20070501

REACTIONS (1)
  - WRIST FRACTURE [None]
